FAERS Safety Report 21761516 (Version 1)
Quarter: 2022Q4

REPORT INFORMATION
  Report Type: Spontaneous
  Country: BR (occurrence: BR)
  Receive Date: 20221221
  Receipt Date: 20221221
  Transmission Date: 20230113
  Serious: Yes (Other)
  Sender: FDA-Public Use
  Company Number: BR-002147023-NVSC2022BR293385

PATIENT
  Age: 30 Year
  Sex: Male

DRUGS (3)
  1. SANDOSTATIN LAR DEPOT [Suspect]
     Active Substance: OCTREOTIDE ACETATE
     Indication: Gigantism
     Dosage: 30 MG
     Route: 065
  2. SANDOSTATIN LAR DEPOT [Suspect]
     Active Substance: OCTREOTIDE ACETATE
  3. SANDOSTATIN LAR DEPOT [Suspect]
     Active Substance: OCTREOTIDE ACETATE

REACTIONS (9)
  - Syncope [Unknown]
  - Brain neoplasm [Unknown]
  - Malaise [Unknown]
  - Illness [Unknown]
  - Asthenia [Unknown]
  - Headache [Unknown]
  - Anxiety [Unknown]
  - Product use in unapproved indication [Unknown]
  - Product availability issue [Unknown]
